FAERS Safety Report 7254748-4 (Version None)
Quarter: 2011Q1

REPORT INFORMATION
  Report Type: 
  Country: None (occurrence: None)
  Receive Date: 20110129
  Receipt Date: 20100226
  Transmission Date: 20110831
  Serious: No
  Sender: FDA-Public Use
  Company Number: US-ABBOTT-10P-163-0629077-00

PATIENT
  Sex: Female
  Weight: 68.1 kg

DRUGS (2)
  1. HUMIRA [Suspect]
  2. HUMIRA [Suspect]
     Indication: CROHN'S DISEASE
     Dosage: DAY 15
     Dates: start: 20100208

REACTIONS (1)
  - CONTUSION [None]
